FAERS Safety Report 9662526 (Version 2)
Quarter: 2013Q4

REPORT INFORMATION
  Report Type: Spontaneous
  Country: US (occurrence: US)
  Receive Date: 20131031
  Receipt Date: 20131031
  Transmission Date: 20140711
  Serious: No
  Sender: FDA-Public Use
  Company Number: US-PURDUE-USA-2011-0066119

PATIENT
  Age: 47 Year
  Sex: Male

DRUGS (3)
  1. OXYCONTIN (NDA 22-272) [Suspect]
     Indication: ANALGESIC THERAPY
     Dosage: 160 MG, BID
     Route: 048
     Dates: start: 201011
  2. OXYCONTIN (NDA 22-272) [Suspect]
     Dosage: 160 MG, BID
     Route: 048
     Dates: start: 201103
  3. OPANA [Concomitant]
     Indication: PAIN

REACTIONS (6)
  - Pain [Not Recovered/Not Resolved]
  - Inadequate analgesia [Not Recovered/Not Resolved]
  - Abdominal pain upper [Not Recovered/Not Resolved]
  - Constipation [Not Recovered/Not Resolved]
  - Headache [Not Recovered/Not Resolved]
  - Drug ineffective [Unknown]
